FAERS Safety Report 6359197-9 (Version None)
Quarter: 2009Q3

REPORT INFORMATION
  Report Type: 
  Country: None (occurrence: None)
  Receive Date: 20090917
  Receipt Date: 20070716
  Transmission Date: 20100115
  Serious: Yes (Other)
  Sender: FDA-Public Use
  Company Number: US-ASTRAZENECA-2009SE12091

PATIENT
  Age: 15814 Day
  Sex: Female
  Weight: 120.2 kg

DRUGS (16)
  1. SEROQUEL [Suspect]
     Indication: INSOMNIA
     Route: 048
     Dates: start: 20040301
  2. GLUCOPHAGE XR [Suspect]
     Dosage: 500
     Dates: start: 20030124
  3. ZONEGRAN [Concomitant]
     Indication: HEADACHE
     Dosage: 100 MG, 2 AT BED TIME
     Dates: start: 20030226
  4. GABITRIL [Concomitant]
     Dosage: 4 MG, 2 AT BED TIME
     Route: 048
     Dates: start: 20050402
  5. CYMBALTA [Concomitant]
     Dosage: 30-60 MG
     Dates: start: 20050203, end: 20070101
  6. VICODIN [Concomitant]
     Indication: HEADACHE
     Dosage: 5 MG/500 MG, 7.5 MG/750 MG, 1 TAB Q6-8 HRS
     Route: 048
     Dates: start: 19890925
  7. VICODIN [Concomitant]
     Indication: ABDOMINAL PAIN
     Dosage: 5 MG/500 MG, 7.5 MG/750 MG, 1 TAB Q6-8 HRS
     Route: 048
     Dates: start: 19890925
  8. EFFEXOR XR [Concomitant]
     Dates: start: 20070303
  9. BYETTA [Concomitant]
     Dosage: 5-20 MG
     Dates: start: 20070213
  10. IRON SULFATETHIAMIN COMPOUND TAB [Concomitant]
     Dosage: EVERY DAY
     Dates: start: 20031027
  11. ACTOS [Concomitant]
     Dosage: 15-30 MG, EVERY MORNING
     Dates: start: 20031103
  12. VYTORIN [Concomitant]
     Dosage: 10/40, AT BED TIME
     Dates: start: 20070215
  13. VERAPAMIL ER [Concomitant]
     Dosage: 180-240 MG
     Route: 048
     Dates: start: 20000421
  14. EXELON [Concomitant]
     Indication: DEMENTIA
     Dates: start: 20030415, end: 20040702
  15. EXELON [Concomitant]
     Indication: COGNITIVE DISORDER
     Dates: start: 20030415, end: 20040702
  16. EXELON [Concomitant]
     Indication: DISTURBANCE IN ATTENTION
     Dates: start: 20030415, end: 20040702

REACTIONS (8)
  - DIABETES MELLITUS INADEQUATE CONTROL [None]
  - DIARRHOEA [None]
  - ECZEMA [None]
  - FUNGAL INFECTION [None]
  - HAEMORRHOIDS [None]
  - MAJOR DEPRESSION [None]
  - RECTAL HAEMORRHAGE [None]
  - TYPE 2 DIABETES MELLITUS [None]
